FAERS Safety Report 22993558 (Version 2)
Quarter: 2023Q4

REPORT INFORMATION
  Report Type: Spontaneous
  Country: LK (occurrence: None)
  Receive Date: 20230927
  Receipt Date: 20231010
  Transmission Date: 20240109
  Serious: Yes (Hospitalization, Other)
  Sender: FDA-Public Use
  Company Number: LK-Unichem Pharmaceuticals (USA) Inc-UCM202309-001208

PATIENT
  Age: 16 Year
  Sex: Female

DRUGS (1)
  1. AMITRIPTYLINE HYDROCHLORIDE [Suspect]
     Active Substance: AMITRIPTYLINE HYDROCHLORIDE
     Indication: Product used for unknown indication
     Dosage: 10 TABLETS

REACTIONS (11)
  - Bladder dilatation [Recovering/Resolving]
  - Neurotoxicity [Recovered/Resolved]
  - Strabismus [Recovered/Resolved]
  - Hypotonia [Recovering/Resolving]
  - Acidosis [Recovering/Resolving]
  - Hyperreflexia [Recovered/Resolved]
  - Loss of consciousness [Recovered/Resolved]
  - Tachycardia [Recovering/Resolving]
  - Mydriasis [Recovering/Resolving]
  - Coma scale abnormal [Recovered/Resolved]
  - Overdose [Unknown]
